FAERS Safety Report 24623717 (Version 3)
Quarter: 2024Q4

REPORT INFORMATION
  Report Type: Spontaneous
  Country: US (occurrence: US)
  Receive Date: 20241115
  Receipt Date: 20241128
  Transmission Date: 20250115
  Serious: No
  Sender: TORRENT PHARMA INC.
  Company Number: US-TORRENT-00013835

PATIENT
  Age: 59 Year
  Sex: Female

DRUGS (2)
  1. ZOLPIDEM TARTRATE [Suspect]
     Active Substance: ZOLPIDEM TARTRATE
     Indication: Insomnia
     Dosage: BOTTLE 2- (C0485221) DISPENSING DATE:25-OCT-2024
     Route: 065
  2. ASPIRIN [Concomitant]
     Active Substance: ASPIRIN
     Indication: Product used for unknown indication
     Dosage: TOOK DAILY
     Route: 060

REACTIONS (7)
  - Drug ineffective [Not Recovered/Not Resolved]
  - Anxiety [Not Recovered/Not Resolved]
  - Depressed mood [Not Recovered/Not Resolved]
  - Hangover [Not Recovered/Not Resolved]
  - Thirst [Not Recovered/Not Resolved]
  - Product quality issue [Not Recovered/Not Resolved]
  - Fatigue [Not Recovered/Not Resolved]
